FAERS Safety Report 19235606 (Version 6)
Quarter: 2022Q2

REPORT INFORMATION
  Report Type: Spontaneous
  Country: US (occurrence: US)
  Receive Date: 20210510
  Receipt Date: 20220425
  Transmission Date: 20220721
  Serious: Yes (Hospitalization, Other)
  Sender: FDA-Public Use
  Company Number: US-SA-SAC20210506000195

PATIENT
  Age: 64 Year
  Sex: Female

DRUGS (2)
  1. KEVZARA [Suspect]
     Active Substance: SARILUMAB
     Indication: Rheumatoid arthritis
     Dosage: 200 MG, QOW
     Route: 058
     Dates: start: 20201015
  2. KEVZARA [Suspect]
     Active Substance: SARILUMAB
     Dosage: 200MG/1.14,200 MG, QOW
     Route: 058
     Dates: start: 202203

REACTIONS (5)
  - Wound sepsis [Unknown]
  - Colitis [Unknown]
  - Gait inability [Unknown]
  - General physical health deterioration [Unknown]
  - Therapy cessation [Unknown]
